FAERS Safety Report 18039318 (Version 1)
Quarter: 2020Q3

REPORT INFORMATION
  Report Type: Other
  Country: US (occurrence: US)
  Receive Date: 20200717
  Receipt Date: 20200717
  Transmission Date: 20201103
  Serious: Yes (Other)
  Sender: FDA-Public Use
  Company Number: US-ROCHE-2642327

PATIENT

DRUGS (2)
  1. TOCILIZUMAB. [Suspect]
     Active Substance: TOCILIZUMAB
     Indication: COVID-19
     Route: 042
  2. RIBAVIRIN. [Suspect]
     Active Substance: RIBAVIRIN
     Indication: COVID-19
     Route: 065

REACTIONS (10)
  - Hypertriglyceridaemia [Unknown]
  - Bacteraemia [Unknown]
  - Systemic candida [Unknown]
  - Intentional product use issue [Unknown]
  - Pneumonia [Unknown]
  - Off label use [Unknown]
  - Amylase increased [Unknown]
  - Lipase increased [Unknown]
  - Bacterial infection [Unknown]
  - Hypothermia [Unknown]
